FAERS Safety Report 17291999 (Version 2)
Quarter: 2020Q1

REPORT INFORMATION
  Report Type: Spontaneous
  Country: US (occurrence: US)
  Receive Date: 20200121
  Receipt Date: 20200321
  Transmission Date: 20200409
  Serious: Yes (Hospitalization, Other)
  Sender: FDA-Public Use
  Company Number: US-DRREDDYS-USA/USA/20/0118652

PATIENT
  Age: 43 Year
  Sex: Male

DRUGS (5)
  1. LORAZEPAM INJECTION USP, 2 MG/ML AND 4 MG/ML [Concomitant]
     Active Substance: LORAZEPAM
     Indication: METABOLIC ACIDOSIS
  2. PROPOFOL INJECTABLE EMULSION [Suspect]
     Active Substance: PROPOFOL
     Indication: SEDATION
     Route: 065
  3. PROPOFOL INJECTABLE EMULSION [Suspect]
     Active Substance: PROPOFOL
     Dosage: UP TO 80 MCG/KG/MIN
  4. PROPOFOL INJECTABLE EMULSION [Suspect]
     Active Substance: PROPOFOL
  5. LEVETIRACETAM. [Concomitant]
     Active Substance: LEVETIRACETAM
     Indication: METABOLIC ACIDOSIS
     Route: 048

REACTIONS (4)
  - Shock [Recovering/Resolving]
  - Propofol infusion syndrome [Recovering/Resolving]
  - Electrocardiogram abnormal [Recovered/Resolved]
  - Ventricular dyssynchrony [Recovering/Resolving]
